FAERS Safety Report 9579882 (Version 2)
Quarter: 2013Q4

REPORT INFORMATION
  Report Type: Spontaneous
  Country: NL (occurrence: NL)
  Receive Date: 20131002
  Receipt Date: 20131002
  Transmission Date: 20140711
  Serious: Yes (Hospitalization)
  Sender: FDA-Public Use
  Company Number: NL-ROCHE-1267705

PATIENT
  Age: 64 Year
  Sex: Female
  Weight: 64 kg

DRUGS (2)
  1. AVASTIN [Suspect]
     Indication: OVARIAN CANCER
     Dosage: EXTRA INFO: 1 KEER PER 3 WEKEN?AVASTIN INFVLST CONC 25MG/ML FLACON ML
     Route: 042
     Dates: start: 201304, end: 20130807
  2. ZOPICLONE [Concomitant]
     Dosage: 1 KEER PER DAG 1 STUK(S), EXTRA INFO: ZN?AS REQUIRED
     Route: 048
     Dates: start: 201301

REACTIONS (1)
  - Transient global amnesia [Recovered/Resolved]
